FAERS Safety Report 8858760 (Version 1)
Quarter: 2012Q4

REPORT INFORMATION
  Report Type: 
  Country: FR (occurrence: FR)
  Receive Date: 20121024
  Receipt Date: 20121024
  Transmission Date: 20130627
  Serious: Yes (Hospitalization)
  Sender: FDA-Public Use
  Company Number: FR-BAYER-2012-108631

PATIENT
  Age: 55 Year
  Sex: Male

DRUGS (3)
  1. NEXAVAR [Suspect]
     Indication: CARCINOMA OF LIVER
     Dosage: 400 mg, BID
     Dates: start: 20120907
  2. NOVOMIX [INSULIN ASPART,INSULIN ASPART PROTAMINE] [Concomitant]
     Dosage: 1.0.0
  3. DIFFU K [Concomitant]

REACTIONS (1)
  - Hepatic encephalopathy [Recovering/Resolving]
